FAERS Safety Report 10628191 (Version 1)
Quarter: 2014Q4

REPORT INFORMATION
  Report Type: Spontaneous
  Country: US (occurrence: US)
  Receive Date: 20141205
  Receipt Date: 20141205
  Transmission Date: 20150529
  Serious: No
  Sender: FDA-Public Use
  Company Number: US-BRISTOL-MYERS SQUIBB COMPANY-21214408

PATIENT
  Sex: Male

DRUGS (5)
  1. ERBITUX [Suspect]
     Active Substance: CETUXIMAB
     Indication: COLORECTAL CANCER METASTATIC
  2. FOLINIC ACID [Concomitant]
     Active Substance: LEUCOVORIN
  3. IRINOTECAN [Concomitant]
     Active Substance: IRINOTECAN
  4. AVASTIN [Concomitant]
     Active Substance: BEVACIZUMAB
  5. 5FU [Concomitant]
     Active Substance: FLUOROURACIL

REACTIONS (2)
  - Fatigue [Unknown]
  - Weight decreased [Unknown]
